FAERS Safety Report 12622911 (Version 1)
Quarter: 2016Q3

REPORT INFORMATION
  Report Type: Spontaneous
  Country: RO (occurrence: RO)
  Receive Date: 20160804
  Receipt Date: 20160804
  Transmission Date: 20161109
  Serious: Yes (Life-Threatening, Hospitalization)
  Sender: FDA-Public Use
  Company Number: RO-KADMON PHARMACEUTICALS, LLC-KAD201607-002852

PATIENT
  Age: 71 Year
  Sex: Male
  Weight: 83 kg

DRUGS (11)
  1. RIBAVIRIN 200 MG [Suspect]
     Active Substance: RIBAVIRIN
     Indication: HEPATITIS C
     Dosage: FILM COATED TABLET
     Route: 048
     Dates: start: 20160711, end: 20160725
  2. VIEKIRAX [Suspect]
     Active Substance: OMBITASVIR\PARITAPREVIR\RITONAVIR
     Indication: HEPATITIS C
     Dosage: FILM COATED TABLET
     Route: 048
     Dates: start: 20160711, end: 20160725
  3. VIEKIRAX [Suspect]
     Active Substance: OMBITASVIR\PARITAPREVIR\RITONAVIR
     Indication: HEPATIC CIRRHOSIS
  4. PREDUCTAL 35 MG TABLET [Concomitant]
     Indication: ESSENTIAL HYPERTENSION
     Route: 048
  5. AFLEN 300 MG TABLET [Concomitant]
     Indication: HEMIPARESIS
     Route: 048
  6. GABARAN 400 MG TABLET [Concomitant]
     Indication: HEMIPARESIS
     Route: 048
  7. BETASERC 24 MG TABLET [Concomitant]
     Indication: VERTEBROBASILAR INSUFFICIENCY
     Route: 048
  8. RIBAVIRIN 200 MG [Suspect]
     Active Substance: RIBAVIRIN
     Indication: HEPATIC CIRRHOSIS
  9. EXVIERA [Suspect]
     Active Substance: DASABUVIR
     Indication: HEPATITIS C
     Dosage: FILM COATED TABLET
     Route: 048
     Dates: start: 20160711, end: 20160725
  10. EXVIERA [Suspect]
     Active Substance: DASABUVIR
     Indication: HEPATIC CIRRHOSIS
  11. PROPRANOLOL 80 MG TABLET [Concomitant]
     Indication: VARICES OESOPHAGEAL
     Route: 048

REACTIONS (9)
  - General physical health deterioration [Unknown]
  - Vomiting [Unknown]
  - Anaemia [Unknown]
  - Ascites [Unknown]
  - Diarrhoea [Unknown]
  - Hepatic encephalopathy [Unknown]
  - Renal failure [Unknown]
  - Ocular icterus [Unknown]
  - Leukocytosis [Unknown]

NARRATIVE: CASE EVENT DATE: 20160722
